FAERS Safety Report 25614747 (Version 1)
Quarter: 2025Q3

REPORT INFORMATION
  Report Type: Spontaneous
  Country: IN (occurrence: IN)
  Receive Date: 20250729
  Receipt Date: 20250729
  Transmission Date: 20251021
  Serious: Yes (Other)
  Sender: CHEPLAPHARM
  Company Number: None

PATIENT
  Age: 59 Year
  Sex: Male

DRUGS (15)
  1. CAPECITABINE [Suspect]
     Active Substance: CAPECITABINE
     Indication: Transitional cell carcinoma metastatic
  2. MITOMYCIN C [Suspect]
     Active Substance: MITOMYCIN
     Indication: Bladder transitional cell carcinoma
     Dosage: D1; GIVEN DURING RADIATION THERAPY?DAILY DOSE: 12 MILLIGRAM/M?
     Route: 042
  3. MITOMYCIN C [Suspect]
     Active Substance: MITOMYCIN
     Indication: Transitional cell carcinoma metastatic
     Dosage: D1; GIVEN DURING RADIATION THERAPY?DAILY DOSE: 12 MILLIGRAM/M?
     Route: 042
  4. GEMCITABINE [Concomitant]
     Active Substance: GEMCITABINE
     Indication: Bladder transitional cell carcinoma
  5. GEMCITABINE [Concomitant]
     Active Substance: GEMCITABINE
     Indication: Transitional cell carcinoma metastatic
  6. CISPLATIN [Concomitant]
     Active Substance: CISPLATIN
     Indication: Bladder transitional cell carcinoma
     Dosage: D1 EVERY 3 WEEKLY; 4 CYCLES
  7. CISPLATIN [Concomitant]
     Active Substance: CISPLATIN
     Indication: Transitional cell carcinoma metastatic
     Dosage: D1 EVERY 3 WEEKLY; 4 CYCLES
  8. PACLITAXEL [Concomitant]
     Active Substance: PACLITAXEL
     Indication: Transitional cell carcinoma metastatic
  9. PACLITAXEL [Concomitant]
     Active Substance: PACLITAXEL
     Indication: Bladder transitional cell carcinoma
  10. PACLITAXEL [Concomitant]
     Active Substance: PACLITAXEL
     Indication: Transitional cell carcinoma metastatic
  11. PACLITAXEL [Concomitant]
     Active Substance: PACLITAXEL
     Indication: Bladder transitional cell carcinoma
  12. CARBOPLATIN [Concomitant]
     Active Substance: CARBOPLATIN
     Indication: Bladder transitional cell carcinoma
     Dosage: SECOND LINE CHEMOTHERAPY ; AUC 5 D1 EVERY 3WEEKLY, 4 CYCLES
  13. CARBOPLATIN [Concomitant]
     Active Substance: CARBOPLATIN
     Indication: Transitional cell carcinoma metastatic
     Dosage: SECOND LINE CHEMOTHERAPY ; AUC 5 D1 EVERY 3WEEKLY, 4 CYCLES
  14. CARBOPLATIN [Concomitant]
     Active Substance: CARBOPLATIN
     Indication: Bladder transitional cell carcinoma
     Dosage: FURTHER 2 CYCLES
  15. CARBOPLATIN [Concomitant]
     Active Substance: CARBOPLATIN
     Indication: Transitional cell carcinoma metastatic
     Dosage: FURTHER 2 CYCLES

REACTIONS (2)
  - Gastrointestinal toxicity [Unknown]
  - Urinary tract toxicity [Unknown]
